FAERS Safety Report 5398359-4 (Version None)
Quarter: 2007Q3

REPORT INFORMATION
  Report Type: 
  Country: None (occurrence: None)
  Receive Date: 20070726
  Receipt Date: 20070526
  Transmission Date: 20080115
  Serious: No
  Sender: FDA-Public Use
  Company Number: US-AMGEN-KDL226862

PATIENT
  Sex: Male
  Weight: 116.7 kg

DRUGS (2)
  1. PROCRIT [Suspect]
     Indication: RENAL FAILURE CHRONIC
     Dates: start: 20070101
  2. ARANESP [Concomitant]

REACTIONS (1)
  - DRUG INEFFECTIVE [None]
